FAERS Safety Report 8267858-X (Version None)
Quarter: 2012Q2

REPORT INFORMATION
  Report Type: 
  Country: None (occurrence: None)
  Receive Date: 20120405
  Receipt Date: 20120405
  Transmission Date: 20120825
  Serious: Yes (Death)
  Sender: FDA-Public Use
  Company Number: None

PATIENT
  Sex: Female

DRUGS (1)
  1. TEMODAR [Suspect]
     Dosage: 250MG ONCE A DAY ORAL
     Route: 048
     Dates: start: 20101102, end: 20110606

REACTIONS (1)
  - BRAIN TUMOUR OPERATION [None]
